FAERS Safety Report 13599261 (Version 2)
Quarter: 2017Q2

REPORT INFORMATION
  Report Type: Spontaneous
  Country: US (occurrence: US)
  Receive Date: 20170531
  Receipt Date: 20170607
  Transmission Date: 20170830
  Serious: Yes (Other)
  Sender: FDA-Public Use
  Company Number: US-GEHC-2017CSU001520

PATIENT
  Age: 13 Year
  Sex: Female

DRUGS (1)
  1. OMNISCAN [Suspect]
     Active Substance: GADODIAMIDE
     Indication: GLIOMA
     Dosage: 0.1 MMOL/KG, 4 ADMINISTRATIONS
     Route: 042

REACTIONS (1)
  - Biopsy brain abnormal [Not Recovered/Not Resolved]
